FAERS Safety Report 4890439-2 (Version None)
Quarter: 2005Q4

REPORT INFORMATION
  Report Type: 
  Country: None (occurrence: None)
  Receive Date: 20051216
  Receipt Date: 20051006
  Transmission Date: 20060501
  Serious: No
  Sender: FDA-Public Use
  Company Number: BDI-007629

PATIENT
  Age: 74 Year
  Sex: Female
  Weight: 66 kg

DRUGS (5)
  1. MULTIHANCE [Suspect]
     Indication: FRACTURE
     Dosage: 14 ML ONCE IV
     Route: 042
     Dates: start: 20050930, end: 20050930
  2. MULTIHANCE [Suspect]
     Indication: NUCLEAR MAGNETIC RESONANCE IMAGING
     Dosage: 14 ML ONCE IV
     Route: 042
     Dates: start: 20050930, end: 20050930
  3. DEXAMTHEASONE [Concomitant]
  4. LEVOTHYROXINE SODIUM [Concomitant]
  5. PANTOPRAZOLE [Concomitant]

REACTIONS (1)
  - NAUSEA [None]
